FAERS Safety Report 9852903 (Version 1)
Quarter: 2014Q1

REPORT INFORMATION
  Report Type: Spontaneous
  Country: US (occurrence: None)
  Receive Date: 20140128
  Receipt Date: 20140128
  Transmission Date: 20141002
  Serious: No
  Sender: FDA-Public Use
  Company Number: None

PATIENT
  Age: 47 Year
  Sex: Male
  Weight: 78 kg

DRUGS (6)
  1. CLEVIDIPINE [Suspect]
     Indication: SINUS TACHYCARDIA
     Dosage: 25MG/50ML
     Route: 042
     Dates: start: 20131105, end: 20131105
  2. CEFAZOLIN [Concomitant]
  3. FAMOTIDINE [Concomitant]
  4. DOCUSATE [Concomitant]
  5. METOPROLOL [Concomitant]
  6. DILTIAZEM [Concomitant]

REACTIONS (2)
  - Tachycardia [None]
  - Atrial fibrillation [None]
